FAERS Safety Report 10234481 (Version 1)
Quarter: 2014Q2

REPORT INFORMATION
  Report Type: Spontaneous
  Country: CN (occurrence: CN)
  Receive Date: 20140613
  Receipt Date: 20140613
  Transmission Date: 20141212
  Serious: Yes (Death)
  Sender: FDA-Public Use
  Company Number: CN-ACCORD-024204

PATIENT
  Age: 54 Year
  Sex: Male

DRUGS (3)
  1. FLUOROURACIL [Suspect]
     Indication: CHEMOTHERAPY
  2. LEVOFOLINATE [Suspect]
     Indication: CHEMOTHERAPY
  3. OXALIPLATIN [Suspect]
     Indication: CHEMOTHERAPY

REACTIONS (1)
  - Multi-organ failure [Fatal]
